FAERS Safety Report 17457149 (Version 3)
Quarter: 2020Q1

REPORT INFORMATION
  Report Type: Report from Study
  Country: US (occurrence: US)
  Receive Date: 20200225
  Receipt Date: 20200331
  Transmission Date: 20200409
  Serious: Yes (Hospitalization)
  Sender: FDA-Public Use
  Company Number: US-SHIRE-US202007173

PATIENT
  Age: 63 Year
  Sex: Male
  Weight: 87.08 kg

DRUGS (22)
  1. ALPRAZOLAM. [Concomitant]
     Active Substance: ALPRAZOLAM
     Indication: ANXIETY
  2. DICLOFENAC [Concomitant]
     Active Substance: DICLOFENAC
     Indication: BACK PAIN
  3. LIDOCAINE [CHLORHEXIDINE;LIDOCAINE] [Concomitant]
     Indication: MUSCULOSKELETAL PAIN
  4. ONDANSETRON [ONDANSETRON HYDROCHLORIDE] [Concomitant]
     Active Substance: ONDANSETRON HYDROCHLORIDE
     Indication: NAUSEA
  5. DICLOFENAC [Concomitant]
     Active Substance: DICLOFENAC
     Indication: MUSCULOSKELETAL PAIN
  6. GABAPENTIN. [Concomitant]
     Active Substance: GABAPENTIN
     Indication: NEURALGIA
  7. VITAMIN D2 [Concomitant]
     Active Substance: ERGOCALCIFEROL
     Indication: BLOOD CALCIUM DECREASED
  8. DENTAGEL [CHLORHEXIDINE] [Concomitant]
     Indication: DENTAL CARIES
  9. VITAMIN D2 [Concomitant]
     Active Substance: ERGOCALCIFEROL
     Indication: SHORT-BOWEL SYNDROME
  10. LIDOCAINE [CHLORHEXIDINE;LIDOCAINE] [Concomitant]
     Indication: BACK PAIN
  11. MELATONIN [CALCIUM;MELATONIN;PYRIDOXINE HYDROCHLORIDE] [Concomitant]
     Indication: SLEEP DISORDER
  12. TESTOSTERONE [TESTOSTERONE CIPIONATE] [Concomitant]
     Indication: HYPOGONADISM
  13. CYANOCOBALAMIN. [Concomitant]
     Active Substance: CYANOCOBALAMIN
     Indication: SHORT-BOWEL SYNDROME
  14. BUPROPION HCL [Concomitant]
     Active Substance: BUPROPION HYDROCHLORIDE
     Indication: AFFECTIVE DISORDER
  15. DICLOFENAC [Concomitant]
     Active Substance: DICLOFENAC
     Indication: NECK PAIN
  16. NEXIUM [Concomitant]
     Active Substance: ESOMEPRAZOLE MAGNESIUM
     Indication: GASTROOESOPHAGEAL REFLUX DISEASE
  17. TAMSULOSIN HCL [Concomitant]
     Active Substance: TAMSULOSIN HYDROCHLORIDE
     Indication: PROSTATIC DISORDER
  18. GATTEX [Suspect]
     Active Substance: TEDUGLUTIDE\WATER
     Indication: SHORT-BOWEL SYNDROME
     Dosage: 0.38 MILLILITER, 1X/DAY:QD
     Route: 058
     Dates: start: 2010
  19. LIDOCAINE [CHLORHEXIDINE;LIDOCAINE] [Concomitant]
     Indication: NECK PAIN
  20. GATTEX [Suspect]
     Active Substance: TEDUGLUTIDE\WATER
     Dosage: 0.38 MILLILITER, 1X/DAY:QD
     Route: 058
     Dates: start: 201407
  21. OXYCODONE HYDROCHLORIDE. [Concomitant]
     Active Substance: OXYCODONE HYDROCHLORIDE
     Indication: PAIN
  22. SODIUM CHLORIDE 0.9% [Concomitant]
     Active Substance: SODIUM CHLORIDE
     Indication: DEHYDRATION

REACTIONS (3)
  - Weight increased [Not Recovered/Not Resolved]
  - Needle issue [Unknown]
  - Hospitalisation [Unknown]

NARRATIVE: CASE EVENT DATE: 20190902
